FAERS Safety Report 24366329 (Version 1)
Quarter: 2024Q3

REPORT INFORMATION
  Report Type: Spontaneous
  Country: US (occurrence: None)
  Receive Date: 20240925
  Receipt Date: 20240925
  Transmission Date: 20241017
  Serious: Yes (Hospitalization)
  Sender: Public
  Company Number: None

PATIENT
  Sex: Male
  Weight: 59.87 kg

DRUGS (3)
  1. WINREVAIR [Suspect]
     Active Substance: SOTATERCEPT-CSRK
     Indication: Pulmonary arterial hypertension
     Dosage: FREQUENCY : EVERY THREE WEEKS;?INJECT 0.4 ML UNDER THE SKIN FOR 1 DOSE, THEN INCREASE TO 0.8 ML FOR
     Route: 058
     Dates: start: 202409
  2. OPSUMIT [Concomitant]
     Active Substance: MACITENTAN
  3. REMODULIN [Concomitant]

REACTIONS (7)
  - Micturition urgency [None]
  - Fatigue [None]
  - Diarrhoea [None]
  - Nausea [None]
  - Vomiting [None]
  - Headache [None]
  - Cough [None]
